FAERS Safety Report 24910479 (Version 2)
Quarter: 2025Q1

REPORT INFORMATION
  Report Type: Spontaneous
  Country: US (occurrence: US)
  Receive Date: 20250131
  Receipt Date: 20250304
  Transmission Date: 20250409
  Serious: No
  Sender: MERCK SHARP & DOHME LLC
  Company Number: US-009507513-2501USA011109

PATIENT
  Age: 86 Year
  Sex: Male

DRUGS (1)
  1. BELSOMRA [Suspect]
     Active Substance: SUVOREXANT
     Indication: Insomnia
     Dosage: DOSE DESCRIPTION : 20 MG AT NIGHT?DAILY DOSE : 20 MILLIGRAM
     Route: 048

REACTIONS (5)
  - Poor quality sleep [Unknown]
  - Product dose omission issue [Unknown]
  - Anger [Unknown]
  - Product use issue [Unknown]
  - Product distribution issue [Unknown]

NARRATIVE: CASE EVENT DATE: 20250101
